FAERS Safety Report 18121496 (Version 1)
Quarter: 2020Q3

REPORT INFORMATION
  Report Type: Spontaneous
  Country: US (occurrence: US)
  Receive Date: 20200806
  Receipt Date: 20200806
  Transmission Date: 20201103
  Serious: No
  Sender: FDA-Public Use
  Company Number: US-ASSERTIO THERAPEUTICS, INC.-US-2019DEP000593

PATIENT
  Sex: Female

DRUGS (1)
  1. CAMBIA [Suspect]
     Active Substance: DICLOFENAC POTASSIUM
     Indication: HEADACHE
     Dosage: MIX ONE PACKET WITH ONE TO TWO OUNCES OF WATER, DRINK IMMEDIATELY AS A SINGLE DOSE
     Route: 048

REACTIONS (2)
  - Product use in unapproved indication [Unknown]
  - Somnolence [Not Recovered/Not Resolved]
